FAERS Safety Report 23641583 (Version 3)
Quarter: 2024Q3

REPORT INFORMATION
  Report Type: Report from Study
  Country: CA (occurrence: CA)
  Receive Date: 20240318
  Receipt Date: 20240907
  Transmission Date: 20241017
  Serious: Yes (Other)
  Sender: JOHNSON AND JOHNSON
  Company Number: CA-JNJFOC-20220802460

PATIENT
  Age: 62 Year
  Sex: Female

DRUGS (11)
  1. REMICADE [Suspect]
     Active Substance: INFLIXIMAB
     Indication: Colitis ulcerative
     Dosage: EXPIRY DATE: 30-SEP-2025
     Route: 041
     Dates: start: 20141009
  2. REMICADE [Suspect]
     Active Substance: INFLIXIMAB
     Indication: Rheumatoid arthritis
     Route: 041
     Dates: start: 20141009
  3. REMICADE [Suspect]
     Active Substance: INFLIXIMAB
     Route: 041
  4. METHOTREXATE [Concomitant]
     Active Substance: METHOTREXATE
     Indication: Product used for unknown indication
     Route: 065
  5. FOLIC ACID [Concomitant]
     Active Substance: FOLIC ACID
  6. ASPIRIN [Concomitant]
     Active Substance: ASPIRIN
  7. METOPROLOL [Concomitant]
     Active Substance: METOPROLOL
  8. CRESTOR [Concomitant]
     Active Substance: ROSUVASTATIN CALCIUM
  9. CALCIUM [Concomitant]
     Active Substance: CALCIUM
  10. ERGOCALCIFEROL [Concomitant]
     Active Substance: ERGOCALCIFEROL
  11. BRILINTA [Concomitant]
     Active Substance: TICAGRELOR

REACTIONS (6)
  - Cataract [Recovered/Resolved]
  - Nausea [Unknown]
  - Weight decreased [Recovering/Resolving]
  - Hepatic enzyme increased [Recovered/Resolved]
  - COVID-19 [Recovered/Resolved]
  - Fatigue [Recovered/Resolved]

NARRATIVE: CASE EVENT DATE: 20240321
